FAERS Safety Report 6020206-8 (Version None)
Quarter: 2008Q4

REPORT INFORMATION
  Report Type: 
  Country: None (occurrence: None)
  Receive Date: 20081223
  Receipt Date: 20081223
  Transmission Date: 20090506
  Serious: Yes (Other)
  Sender: FDA-Public Use
  Company Number: None

PATIENT
  Age: 7 Year
  Sex: Male
  Weight: 39.4629 kg

DRUGS (1)
  1. ZYRTEC [Suspect]
     Indication: RHINITIS
     Dosage: 10 MG 1 X DAILY PO
     Route: 048
     Dates: start: 20081212, end: 20081219

REACTIONS (1)
  - MOVEMENT DISORDER [None]
